FAERS Safety Report 22168777 (Version 2)
Quarter: 2023Q2

REPORT INFORMATION
  Report Type: Spontaneous
  Country: GB (occurrence: GB)
  Receive Date: 20230403
  Receipt Date: 20230405
  Transmission Date: 20230722
  Serious: Yes (Other)
  Sender: FDA-Public Use
  Company Number: GB-009507513-2303GBR011096

PATIENT
  Sex: Female

DRUGS (1)
  1. KEYTRUDA [Suspect]
     Active Substance: PEMBROLIZUMAB
     Dosage: STRENGTH/PRESENTATION:120 MG

REACTIONS (4)
  - Anaphylactic shock [Unknown]
  - Renal disorder [Unknown]
  - Hypersensitivity [Unknown]
  - Pyrexia [Unknown]
